FAERS Safety Report 8493734-3 (Version None)
Quarter: 2012Q3

REPORT INFORMATION
  Report Type: 
  Country: None (occurrence: None)
  Receive Date: 20120706
  Receipt Date: 20120702
  Transmission Date: 20120928
  Serious: Yes (Other)
  Sender: FDA-Public Use
  Company Number: PHHY2012US056512

PATIENT
  Age: 81 Year
  Sex: Female

DRUGS (2)
  1. NIFEDIPINE [Concomitant]
  2. ASPIRIN [Suspect]
     Indication: HEART DISEASE CONGENITAL
     Dosage: 1 DF,DAILY
     Route: 048
     Dates: start: 20020101

REACTIONS (5)
  - ANGINA PECTORIS [None]
  - DRY EYE [None]
  - EYE DISORDER [None]
  - INCORRECT DRUG ADMINISTRATION DURATION [None]
  - GLAUCOMA [None]
